FAERS Safety Report 6864948-0 (Version None)
Quarter: 2010Q3

REPORT INFORMATION
  Report Type: 
  Country: None (occurrence: None)
  Receive Date: 20100721
  Receipt Date: 20080410
  Transmission Date: 20110219
  Serious: No
  Sender: FDA-Public Use
  Company Number: US-PFIZER INC-2008033929

PATIENT
  Sex: Male

DRUGS (6)
  1. CHANTIX [Suspect]
     Indication: SMOKING CESSATION THERAPY
     Route: 048
     Dates: start: 20070101
  2. EFFEXOR [Concomitant]
  3. DESYREL [Concomitant]
  4. CRESTOR [Concomitant]
  5. GLUCOPHAGE [Concomitant]
  6. IMITREX [Concomitant]

REACTIONS (2)
  - CONSTIPATION [None]
  - NIGHTMARE [None]
